FAERS Safety Report 19375676 (Version 1)
Quarter: 2021Q2

REPORT INFORMATION
  Report Type: Spontaneous
  Country: US (occurrence: US)
  Receive Date: 20210605
  Receipt Date: 20210605
  Transmission Date: 20210717
  Serious: Yes (Hospitalization, Other)
  Sender: FDA-Public Use
  Company Number: US-AUROBINDO-AUR-APL-2021-021940

PATIENT
  Age: 64 Year
  Sex: Female

DRUGS (2)
  1. CIPROFLOXACIN. [Suspect]
     Active Substance: CIPROFLOXACIN
     Indication: URINARY TRACT INFECTION
     Dosage: UNK
     Route: 065
  2. CLOZAPINE. [Interacting]
     Active Substance: CLOZAPINE
     Indication: SCHIZOAFFECTIVE DISORDER
     Dosage: UNK
     Route: 065

REACTIONS (14)
  - Somnolence [Unknown]
  - Drug level decreased [Unknown]
  - Drug level increased [Unknown]
  - Drug interaction [Unknown]
  - Urinary tract infection [Unknown]
  - Urosepsis [Unknown]
  - Myocarditis [Recovered/Resolved]
  - Irritability [Unknown]
  - Hypokinesia [Unknown]
  - Confusional state [Recovered/Resolved]
  - Peripheral coldness [Unknown]
  - Cardiomyopathy [Unknown]
  - Irritability [Recovered/Resolved]
  - Hypotension [Unknown]
